FAERS Safety Report 6189700-3 (Version None)
Quarter: 2009Q2

REPORT INFORMATION
  Report Type: 
  Country: None (occurrence: None)
  Receive Date: 20090512
  Receipt Date: 20090512
  Transmission Date: 20091009
  Serious: Yes (Life-Threatening, Other)
  Sender: FDA-Public Use
  Company Number: None

PATIENT
  Age: 25 Year
  Sex: Male
  Weight: 68.0396 kg

DRUGS (2)
  1. ABILIFY [Suspect]
     Indication: BIPOLAR DISORDER
     Dosage: 15MG DAILY PO
     Route: 048
  2. ABILIFY [Suspect]
     Indication: MANIA
     Dosage: 15MG DAILY PO
     Route: 048

REACTIONS (3)
  - AGGRESSION [None]
  - RESTLESSNESS [None]
  - WITHDRAWAL SYNDROME [None]
